FAERS Safety Report 19777394 (Version 1)
Quarter: 2021Q3

REPORT INFORMATION
  Report Type: Spontaneous
  Country: US (occurrence: US)
  Receive Date: 20210831
  Receipt Date: 20210831
  Transmission Date: 20211014
  Serious: Yes (Hospitalization)
  Sender: FDA-Public Use
  Company Number: None

PATIENT
  Age: 61 Year
  Sex: Male
  Weight: 72 kg

DRUGS (1)
  1. CISPLATIN. [Suspect]
     Active Substance: CISPLATIN
     Dosage: 40MG/M2 IV QW FOR 7 WEEKS
     Route: 042
     Dates: end: 20210816

REACTIONS (4)
  - Feeding disorder [None]
  - Hypoglycaemia [None]
  - Dehydration [None]
  - Stomatitis [None]

NARRATIVE: CASE EVENT DATE: 20210822
